FAERS Safety Report 7431237-5 (Version None)
Quarter: 2011Q2

REPORT INFORMATION
  Report Type: 
  Country: None (occurrence: None)
  Receive Date: 20110421
  Receipt Date: 20110412
  Transmission Date: 20111010
  Serious: Yes (Hospitalization)
  Sender: FDA-Public Use
  Company Number: JP-AMGEN-JPNCT2011014852

PATIENT
  Age: 67 Year
  Sex: Male
  Weight: 48 kg

DRUGS (5)
  1. PANITUMUMAB [Suspect]
     Indication: COLORECTAL CANCER METASTATIC
     Dosage: 280 MG, Q2WK
     Route: 041
     Dates: start: 20110125
  2. ELPLAT [Suspect]
     Indication: COLORECTAL CANCER
     Route: 041
     Dates: start: 20110125, end: 20110222
  3. CALCIUM LEVOFOLINATE [Concomitant]
     Indication: COLORECTAL CANCER
     Route: 041
     Dates: start: 20110125, end: 20110222
  4. FLUOROURACIL [Suspect]
     Indication: COLORECTAL CANCER
     Route: 040
     Dates: start: 20110125, end: 20110224
  5. FLUOROURACIL [Suspect]
     Route: 041
     Dates: start: 20110125, end: 20110224

REACTIONS (5)
  - RENAL IMPAIRMENT [None]
  - BLOOD CREATINE PHOSPHOKINASE INCREASED [None]
  - FEBRILE NEUTROPENIA [None]
  - BLOOD GLUCOSE INCREASED [None]
  - DECREASED APPETITE [None]
